FAERS Safety Report 14294582 (Version 3)
Quarter: 2018Q1

REPORT INFORMATION
  Report Type: Spontaneous
  Country: US (occurrence: US)
  Receive Date: 20171218
  Receipt Date: 20180108
  Transmission Date: 20180509
  Serious: Yes (Hospitalization, Other)
  Sender: FDA-Public Use
  Company Number: US-BIOGEN-2017BI00373383

PATIENT
  Sex: Female

DRUGS (3)
  1. ZINBRYTA [Suspect]
     Active Substance: DACLIZUMAB
     Route: 058
  2. ZINBRYTA [Suspect]
     Active Substance: DACLIZUMAB
     Indication: MULTIPLE SCLEROSIS
     Route: 058
     Dates: start: 20160926, end: 20170908
  3. ZINBRYTA [Suspect]
     Active Substance: DACLIZUMAB
     Route: 058
     Dates: start: 201710

REACTIONS (11)
  - Peripheral swelling [Not Recovered/Not Resolved]
  - Drug ineffective [Unknown]
  - Arthralgia [Unknown]
  - Mobility decreased [Unknown]
  - Drug dose omission [Unknown]
  - Emotional distress [Unknown]
  - Stress [Unknown]
  - Immune-mediated adverse reaction [Unknown]
  - Confusional state [Unknown]
  - Visual impairment [Not Recovered/Not Resolved]
  - Withdrawal syndrome [Unknown]
